FAERS Safety Report 18932432 (Version 1)
Quarter: 2021Q1

REPORT INFORMATION
  Report Type: Spontaneous
  Country: JP (occurrence: JP)
  Receive Date: 20210223
  Receipt Date: 20210223
  Transmission Date: 20210420
  Serious: Yes (Hospitalization, Other)
  Sender: FDA-Public Use
  Company Number: JP-009507513-2102JPN002163J

PATIENT
  Age: 49 Year
  Sex: Male
  Weight: 67 kg

DRUGS (2)
  1. SUGLAT [Suspect]
     Active Substance: IPRAGLIFLOZIN L-PROLINE
     Indication: TYPE 2 DIABETES MELLITUS
     Dosage: 50 MILLIGRAM/DAY
     Route: 048
     Dates: start: 20200808
  2. JANUVIA [Suspect]
     Active Substance: SITAGLIPTIN PHOSPHATE
     Indication: TYPE 2 DIABETES MELLITUS
     Dosage: 50 MILLIGRAM/DAY
     Route: 048
     Dates: start: 20200805, end: 20200810

REACTIONS (1)
  - Type 1 diabetes mellitus [Unknown]
